FAERS Safety Report 18187305 (Version 1)
Quarter: 2020Q3

REPORT INFORMATION
  Report Type: Spontaneous
  Country: US (occurrence: US)
  Receive Date: 20200824
  Receipt Date: 20200824
  Transmission Date: 20201103
  Serious: Yes (Death)
  Sender: FDA-Public Use
  Company Number: None

PATIENT
  Age: 91 Year
  Sex: Female
  Weight: 45 kg

DRUGS (12)
  1. REMDESIVIR. [Suspect]
     Active Substance: REMDESIVIR
     Indication: COVID-19 TREATMENT
     Dates: start: 20200814, end: 20200818
  2. ATENOLOL 25 MG PO DAILY [Concomitant]
     Dates: start: 20200814, end: 20200818
  3. DEXAMETHASONE 6 MG IV DAILY [Concomitant]
     Dates: start: 20200814, end: 20200818
  4. LORAZEPAM1 MG IV Q1H PRN [Concomitant]
     Dates: start: 20200818
  5. ENOXAPARIN 30 MG SUBQ DAILY [Concomitant]
     Dates: start: 20200814, end: 20200818
  6. PANTOPRAZOLE 40 MG DR PO DAILY [Concomitant]
     Dates: start: 20200814, end: 20200818
  7. HYDROMORPHONE PCA [Concomitant]
     Active Substance: HYDROMORPHONE
     Dates: start: 20200818
  8. MORPHINE 2 MG IV Q4H PRN [Concomitant]
     Dates: start: 20200816, end: 20200818
  9. ATORVASTATIN 20 MG PO DAILY [Concomitant]
     Dates: start: 20200814, end: 20200818
  10. MVI 1 TAB PO DAILY [Concomitant]
     Dates: start: 20200814, end: 20200818
  11. AMLODIPINE 5 MG PO DAILY [Concomitant]
     Dates: start: 20200814, end: 20200818
  12. BISACODYL 10 MG PER RECTUM PRN [Concomitant]
     Dates: start: 20200818

REACTIONS (2)
  - Tachypnoea [None]
  - Oxygen saturation decreased [None]

NARRATIVE: CASE EVENT DATE: 20200819
